FAERS Safety Report 4784959-9 (Version None)
Quarter: 2005Q3

REPORT INFORMATION
  Report Type: 
  Country: None (occurrence: None)
  Receive Date: 20050930
  Receipt Date: 20050926
  Transmission Date: 20060218
  Serious: Yes (Life-Threatening, Hospitalization)
  Sender: FDA-Public Use
  Company Number: PHEH2005US10645

PATIENT
  Age: 33 Year
  Sex: Female
  Weight: 86 kg

DRUGS (5)
  1. FAMVIR [Suspect]
     Indication: HERPES ZOSTER
     Route: 048
     Dates: start: 20041128, end: 20041207
  2. VALTREX [Suspect]
     Indication: HERPES ZOSTER
     Dosage: 1 G, TID
     Route: 048
     Dates: start: 20041127, end: 20041128
  3. PRENATAL VITAMINS [Concomitant]
  4. ASPIRIN [Concomitant]
  5. SYNTHROID [Concomitant]

REACTIONS (5)
  - BLOOD PRESSURE DECREASED [None]
  - DRUG EXPOSURE DURING PREGNANCY [None]
  - DYSPNOEA [None]
  - NORMAL NEWBORN [None]
  - WHEEZING [None]
